FAERS Safety Report 8594774-6 (Version None)
Quarter: 2012Q3

REPORT INFORMATION
  Report Type: 
  Country: None (occurrence: None)
  Receive Date: 20120815
  Receipt Date: 20120809
  Transmission Date: 20120928
  Serious: Yes (Death)
  Sender: FDA-Public Use
  Company Number: JP-SHIRE-ALL1-2012-03848

PATIENT
  Age: 77 Year
  Sex: Male

DRUGS (11)
  1. LANTHANUM CARBONATE [Suspect]
     Indication: HYPERPHOSPHATAEMIA
     Dosage: 750 MG, 1X/DAY:QD
     Route: 048
     Dates: start: 20100520, end: 20100628
  2. DOPS [Concomitant]
     Indication: PROPHYLAXIS
     Dosage: 200 MG, UNKNOWN
     Route: 048
  3. LASIX [Concomitant]
     Indication: URINE FLOW DECREASED
     Dosage: 80 MG, UNKNOWN
     Route: 048
  4. ASPIRIN [Concomitant]
     Indication: CARDIOVASCULAR EVENT PROPHYLAXIS
     Dosage: 100 MG, UNKNOWN
     Route: 048
  5. PLETAL [Concomitant]
     Indication: PRODUCT USED FOR UNKNOWN INDICATION
     Dosage: 1 G, UNKNOWN
     Route: 048
  6. LANTHANUM CARBONATE [Suspect]
     Indication: RENAL FAILURE CHRONIC
     Dosage: 1500 MG, 1X/DAY:QD
     Route: 048
     Dates: start: 20100629, end: 20110928
  7. ALFAROL [Concomitant]
     Indication: PRODUCT USED FOR UNKNOWN INDICATION
     Dosage: 0.25 ?G, UNKNOWN
     Route: 048
     Dates: start: 20100316, end: 20110928
  8. CEREKINON [Concomitant]
     Indication: PRODUCT USED FOR UNKNOWN INDICATION
     Dosage: 300 MG, UNKNOWN
     Route: 048
  9. PRECIPITATED CALCIUM CARBONATE [Concomitant]
     Indication: HYPERPHOSPHATAEMIA
     Dosage: 1500 MG, 1X/DAY:QD
     Route: 048
     Dates: start: 20101130, end: 20110928
  10. OPALMON [Concomitant]
     Indication: PRODUCT USED FOR UNKNOWN INDICATION
     Dosage: 30 ?G, UNKNOWN
     Route: 048
  11. BISOPROLOL FUMARATE [Concomitant]
     Indication: PRODUCT USED FOR UNKNOWN INDICATION
     Dosage: 2.5 MG, UNKNOWN
     Route: 048

REACTIONS (3)
  - LUNG NEOPLASM MALIGNANT [None]
  - ACUTE RESPIRATORY FAILURE [None]
  - INTERSTITIAL LUNG DISEASE [None]
